FAERS Safety Report 9920240 (Version 1)
Quarter: 2014Q1

REPORT INFORMATION
  Report Type: Spontaneous
  Country: IT (occurrence: IT)
  Receive Date: 20140224
  Receipt Date: 20140224
  Transmission Date: 20141002
  Serious: Yes (Other)
  Sender: FDA-Public Use
  Company Number: IT-ACTAVIS-2014-02865

PATIENT
  Age: 60 Year
  Sex: Male

DRUGS (2)
  1. IBUPROFEN (UNKNOWN) [Suspect]
     Indication: TENDON PAIN
     Dosage: 1 DF, TOTAL
     Route: 048
     Dates: start: 20140110, end: 20140110
  2. LANSOPRAZOLE (UNKNOWN) [Suspect]
     Indication: TENDON PAIN
     Dosage: 1 DF, TOTAL
     Route: 048
     Dates: start: 20140110, end: 20140110

REACTIONS (3)
  - Hypersensitivity [Recovering/Resolving]
  - Lip oedema [Recovering/Resolving]
  - Rash generalised [Recovering/Resolving]
